FAERS Safety Report 24528534 (Version 2)
Quarter: 2024Q4

REPORT INFORMATION
  Report Type: Spontaneous
  Country: US (occurrence: US)
  Receive Date: 20241021
  Receipt Date: 20241031
  Transmission Date: 20250114
  Serious: Yes (Other)
  Sender: INCYTE
  Company Number: US-INCYTE CORPORATION-2024IN010817

PATIENT

DRUGS (14)
  1. JAKAFI [Suspect]
     Active Substance: RUXOLITINIB
     Indication: Myelofibrosis
     Dosage: 10 MILLIGRAM, BID
     Route: 048
     Dates: start: 2016, end: 202402
  2. JAKAFI [Suspect]
     Active Substance: RUXOLITINIB
     Dosage: 2X10MG TABLETS BY MOUTH 1 TIME EVERY OTHER DAY ALTERNATING WITH 1X10MG TABLET EVERY OTHER DAY
     Route: 048
     Dates: start: 201911
  3. JAKAFI [Suspect]
     Active Substance: RUXOLITINIB
     Dosage: 10 MILLIGRAM, BID
     Route: 048
     Dates: start: 202403
  4. TYLENOL [Concomitant]
     Active Substance: ACETAMINOPHEN
     Indication: Pain
     Dosage: 500 MILLIGRAM, 2 TABLETS EVERY 6 HOURS
     Route: 065
  5. CEFTAZIDIME [Concomitant]
     Active Substance: CEFTAZIDIME
     Indication: Product used for unknown indication
     Dosage: 1 DROP IN THE LEFT EYE, FOUR TIMES DAILY
     Route: 047
  6. CHOLECALCIFEROL [Concomitant]
     Active Substance: CHOLECALCIFEROL
     Indication: Product used for unknown indication
     Dosage: 1250 MICROGRAM, WEEKLY
     Route: 065
  7. COLACE [Concomitant]
     Active Substance: DOCUSATE SODIUM
     Indication: Product used for unknown indication
     Dosage: 100 MILLIGRAM, BID
     Route: 065
  8. DRISDOL [Concomitant]
     Active Substance: ERGOCALCIFEROL
     Indication: Product used for unknown indication
     Dosage: 50000 MICROGRAM, 2X/WEEK FOR 22 DOSES
     Route: 048
  9. ROMYCIN [ERYTHROMYCIN] [Concomitant]
     Indication: Product used for unknown indication
     Dosage: 1 APPLICATION IN THE LEFT EYE DAILY AT BEDIME
     Route: 047
  10. LEXAPRO [Concomitant]
     Active Substance: ESCITALOPRAM OXALATE
     Indication: Product used for unknown indication
     Dosage: 5 MILLIGRAM, QD
     Route: 048
  11. GLUCAGON [Concomitant]
     Active Substance: GLUCAGON
     Indication: Shock hypoglycaemic
     Dosage: 1 MILLIGRAM
     Route: 065
  12. DEXTROSE [Concomitant]
     Active Substance: DEXTROSE MONOHYDRATE
     Indication: Product used for unknown indication
     Dosage: 16 GRAM, AS NEEDED
     Route: 048
  13. ATARAX [Concomitant]
     Active Substance: HYDROXYZINE HYDROCHLORIDE
     Indication: Product used for unknown indication
     Dosage: 25 MILLIGRAM, BID AS NEEDED
     Route: 048
  14. BASAGLAR KWIKPEN [Concomitant]
     Active Substance: INSULIN GLARGINE
     Indication: Product used for unknown indication
     Dosage: 12 UNITS QHS FOR TIMES OF INSULIN PUMP REMOVAL
     Route: 058

REACTIONS (14)
  - Osteoporotic fracture [Recovering/Resolving]
  - Deep vein thrombosis [Not Recovered/Not Resolved]
  - Vaginal cancer stage 0 [Not Recovered/Not Resolved]
  - Endometrial cancer [Not Recovered/Not Resolved]
  - Vulval cancer [Not Recovered/Not Resolved]
  - Squamous cell carcinoma [Not Recovered/Not Resolved]
  - Ocular surface squamous neoplasia [Not Recovered/Not Resolved]
  - Vulvar dysplasia [Not Recovered/Not Resolved]
  - Intestinal ischaemia [Not Recovered/Not Resolved]
  - Mobility decreased [Unknown]
  - Blood pressure increased [Not Recovered/Not Resolved]
  - Vaginal haemorrhage [Not Recovered/Not Resolved]
  - Stress fracture [Recovering/Resolving]
  - Abnormal weight gain [Not Recovered/Not Resolved]

NARRATIVE: CASE EVENT DATE: 20160826
